FAERS Safety Report 19311901 (Version 2)
Quarter: 2021Q2

REPORT INFORMATION
  Report Type: Spontaneous
  Country: US (occurrence: US)
  Receive Date: 20210527
  Receipt Date: 20210629
  Transmission Date: 20210717
  Serious: No
  Sender: FDA-Public Use
  Company Number: US-CELGENEUS-USA-20210505713

PATIENT
  Sex: Male
  Weight: 117.13 kg

DRUGS (1)
  1. REVLIMID [Suspect]
     Active Substance: LENALIDOMIDE
     Indication: PLASMA CELL MYELOMA
     Dosage: 20 MILLIGRAM
     Route: 048
     Dates: start: 202104

REACTIONS (4)
  - Joint swelling [Unknown]
  - Infection [Unknown]
  - Contusion [Unknown]
  - Vein disorder [Unknown]

NARRATIVE: CASE EVENT DATE: 2021
